FAERS Safety Report 19323789 (Version 1)
Quarter: 2021Q2

REPORT INFORMATION
  Report Type: Report from Study
  Country: US (occurrence: US)
  Receive Date: 20210528
  Receipt Date: 20210528
  Transmission Date: 20210717
  Serious: No
  Sender: FDA-Public Use
  Company Number: NVSC2021US114325

PATIENT
  Age: 16 Year
  Sex: Female
  Weight: 58.05 kg

DRUGS (1)
  1. ILARIS [Suspect]
     Active Substance: CANAKINUMAB
     Indication: PYREXIA
     Dosage: 240 MG, Q4W (EVERY 4 WEEKS)
     Route: 058
     Dates: start: 20210421

REACTIONS (2)
  - Pyrexia [Unknown]
  - Migraine [Unknown]

NARRATIVE: CASE EVENT DATE: 202104
